FAERS Safety Report 6133591-3 (Version None)
Quarter: 2009Q1

REPORT INFORMATION
  Report Type: 
  Country: None (occurrence: None)
  Receive Date: 20090326
  Receipt Date: 20090313
  Transmission Date: 20090719
  Serious: Yes (Life-Threatening)
  Sender: FDA-Public Use
  Company Number: JP-ABBOTT-09P-087-0560525-00

PATIENT
  Age: 75 Year
  Sex: Male

DRUGS (2)
  1. LEUPLIN SR FOR INJECTION KIT 11.25 MG [Suspect]
     Indication: PROSTATE CANCER STAGE II
     Route: 058
     Dates: start: 20080109
  2. CASODEX [Concomitant]
     Indication: PROSTATE CANCER STAGE II
     Route: 048
     Dates: end: 20080625

REACTIONS (2)
  - METASTATIC NEOPLASM [None]
  - PANCREATIC CARCINOMA [None]
